FAERS Safety Report 10085672 (Version 1)
Quarter: 2014Q2

REPORT INFORMATION
  Report Type: Spontaneous
  Country: US (occurrence: None)
  Receive Date: 20140416
  Receipt Date: 20140416
  Transmission Date: 20141212
  Serious: Yes (Other)
  Sender: FDA-Public Use
  Company Number: 2014SA045857

PATIENT
  Sex: Male

DRUGS (1)
  1. UNISOM SLEEPGELS NIGHTTIME SLEEP-AID [Suspect]
     Indication: PRODUCT USED FOR UNKNOWN INDICATION

REACTIONS (7)
  - Heart rate increased [None]
  - Somnolence [None]
  - Palpitations [None]
  - Dyspnoea [None]
  - Feeling abnormal [None]
  - Hypersensitivity [None]
  - Overdose [None]
